FAERS Safety Report 4973160-1 (Version None)
Quarter: 2006Q2

REPORT INFORMATION
  Report Type: 
  Country: None (occurrence: None)
  Receive Date: 20060414
  Receipt Date: 20060227
  Transmission Date: 20061013
  Serious: Yes (Hospitalization)
  Sender: FDA-Public Use
  Company Number: US-MERCK-0602USA05947

PATIENT
  Age: 73 Year
  Sex: Male

DRUGS (20)
  1. NUCOFED [Concomitant]
     Route: 065
  2. ALREX [Concomitant]
     Route: 065
  3. PENICILLIN VK [Concomitant]
     Route: 065
  4. ULTRAM [Concomitant]
     Route: 065
  5. VEETIDS [Concomitant]
     Route: 065
  6. ALLEGRA [Concomitant]
     Route: 065
  7. FLOMAX (MORNIFLUMATE) [Concomitant]
     Route: 065
  8. HYDROCODONE BITARTRATE + ACETAMINOPHEN [Concomitant]
     Route: 065
  9. CYTUSS HC [Concomitant]
     Route: 065
  10. SMZ-TMP [Concomitant]
     Route: 065
  11. ACETAMINOPHEN AND OXYCODONE HYDROCHLORIDE [Concomitant]
     Route: 065
  12. TOPROL-XL [Concomitant]
     Route: 065
     Dates: start: 20040101
  13. DICYCLOMINE HYDROCHLORIDE [Concomitant]
     Route: 065
  14. MENTAX [Concomitant]
     Route: 065
  15. VIOXX [Suspect]
     Indication: ARTHRALGIA
     Route: 048
     Dates: start: 19990805, end: 20040710
  16. LORAZEPAM [Concomitant]
     Route: 065
  17. ZITHROMAX [Concomitant]
     Route: 065
  18. VIAGRA [Concomitant]
     Route: 065
  19. NASAREL [Concomitant]
     Route: 065
  20. AMOXICILLIN [Concomitant]
     Route: 065

REACTIONS (16)
  - ARTERIOSCLEROSIS CORONARY ARTERY [None]
  - ATRIAL FIBRILLATION [None]
  - ATRIAL FLUTTER [None]
  - CARDIAC FAILURE CONGESTIVE [None]
  - CHEST DISCOMFORT [None]
  - CONDITION AGGRAVATED [None]
  - CORONARY ARTERY DISEASE [None]
  - HIP ARTHROPLASTY [None]
  - HYPERTENSION [None]
  - MYOCARDIAL INFARCTION [None]
  - OSTEOARTHRITIS [None]
  - OSTEOPOROSIS [None]
  - PALPITATIONS [None]
  - PULMONARY CONGESTION [None]
  - RENAL ARTERY ARTERIOSCLEROSIS [None]
  - RHINITIS ALLERGIC [None]
